FAERS Safety Report 6353118-0 (Version None)
Quarter: 2009Q3

REPORT INFORMATION
  Report Type: 
  Country: None (occurrence: None)
  Receive Date: 20090912
  Receipt Date: 20090622
  Transmission Date: 20100115
  Serious: No
  Sender: FDA-Public Use
  Company Number: US-ABBOTT-08P-163-0452631-00

PATIENT
  Sex: Female
  Weight: 103.63 kg

DRUGS (5)
  1. HUMIRA [Suspect]
     Indication: RHEUMATOID ARTHRITIS
     Route: 050
     Dates: start: 20080501
  2. HYDROXYCHLOROQUINE [Concomitant]
     Indication: RHEUMATOID ARTHRITIS
     Route: 048
     Dates: start: 20040101
  3. LEFLUNOMIDE [Concomitant]
     Indication: RHEUMATOID ARTHRITIS
     Route: 048
     Dates: start: 20060101
  4. CELECOXIB [Concomitant]
     Indication: RHEUMATOID ARTHRITIS
     Route: 048
  5. MONTELUKAST [Concomitant]
     Indication: EUSTACHIAN TUBE DYSFUNCTION
     Route: 048
     Dates: start: 20020101

REACTIONS (3)
  - INCORRECT DOSE ADMINISTERED [None]
  - SNEEZING [None]
  - WRONG TECHNIQUE IN DRUG USAGE PROCESS [None]
